FAERS Safety Report 6274706-6 (Version None)
Quarter: 2009Q3

REPORT INFORMATION
  Report Type: 
  Country: None (occurrence: None)
  Receive Date: 20090721
  Receipt Date: 20070822
  Transmission Date: 20100115
  Serious: Yes (Other)
  Sender: FDA-Public Use
  Company Number: US-ASTRAZENECA-2006UW07959

PATIENT
  Age: 41 Year
  Sex: Female
  Weight: 99.3 kg

DRUGS (10)
  1. SEROQUEL [Suspect]
     Indication: HALLUCINATION
     Route: 048
     Dates: start: 20020108, end: 20050101
  2. SEROQUEL [Suspect]
     Indication: DEPRESSION
     Route: 048
     Dates: start: 20020108, end: 20050101
  3. SEROQUEL [Suspect]
     Indication: SCHIZOPHRENIA
     Route: 048
     Dates: start: 20020108, end: 20050101
  4. SEROQUEL [Suspect]
     Route: 048
     Dates: start: 20020731
  5. SEROQUEL [Suspect]
     Route: 048
     Dates: start: 20020731
  6. SEROQUEL [Suspect]
     Route: 048
     Dates: start: 20020731
  7. GEODON [Concomitant]
  8. NORVASC [Concomitant]
     Route: 048
     Dates: start: 20020731
  9. ZOLOFT [Concomitant]
     Route: 048
     Dates: start: 20020731
  10. ENALAPRIL MALEATE [Concomitant]
     Dosage: DAILY
     Route: 048
     Dates: start: 20020731

REACTIONS (3)
  - CEREBROVASCULAR ACCIDENT [None]
  - DIABETES MELLITUS [None]
  - TYPE 2 DIABETES MELLITUS [None]
